FAERS Safety Report 10258111 (Version 3)
Quarter: 2014Q2

REPORT INFORMATION
  Report Type: Spontaneous
  Country: IT (occurrence: IT)
  Receive Date: 20140625
  Receipt Date: 20140626
  Transmission Date: 20141212
  Serious: Yes (Other)
  Sender: FDA-Public Use
  Company Number: PHHY2014IT072375

PATIENT
  Age: 71 Year
  Sex: Male

DRUGS (1)
  1. ALENDRONATE [Suspect]
     Indication: RHEUMATOID ARTHRITIS
     Dosage: 70 MG, QW
     Route: 048

REACTIONS (1)
  - Abscess jaw [Recovered/Resolved]
